FAERS Safety Report 9531045 (Version 1)
Quarter: 2013Q3

REPORT INFORMATION
  Report Type: Spontaneous
  Country: SE (occurrence: SE)
  Receive Date: 20130918
  Receipt Date: 20130918
  Transmission Date: 20140515
  Serious: Yes (Hospitalization, Disabling)
  Sender: FDA-Public Use
  Company Number: SE-JNJFOC-20130905206

PATIENT
  Age: 75 Year
  Sex: Male

DRUGS (5)
  1. REMICADE [Suspect]
     Indication: ANKYLOSING SPONDYLITIS
     Route: 042
     Dates: start: 20080826
  2. METFORMIN [Concomitant]
     Route: 065
  3. ENALAPRIL [Concomitant]
     Route: 065
  4. LOPID [Concomitant]
     Route: 065
  5. TROMBYL [Concomitant]
     Route: 065

REACTIONS (4)
  - Loss of control of legs [Not Recovered/Not Resolved]
  - Balance disorder [Not Recovered/Not Resolved]
  - Gait disturbance [Not Recovered/Not Resolved]
  - Muscle contracture [Not Recovered/Not Resolved]
